FAERS Safety Report 5685059-6 (Version None)
Quarter: 2008Q1

REPORT INFORMATION
  Report Type: 
  Country: None (occurrence: None)
  Receive Date: 20080328
  Receipt Date: 20000403
  Transmission Date: 20080703
  Serious: Yes (Death, Other)
  Sender: FDA-Public Use
  Company Number: US-ROCHE-233276

PATIENT
  Age: 51 Year
  Sex: Male

DRUGS (6)
  1. SAQUINAVIR SOFT GELATINE CAPSULES [Suspect]
     Indication: HIV INFECTION
     Route: 065
  2. STAVUDINE [Suspect]
     Indication: HIV INFECTION
     Route: 065
  3. LAMIVUDINE [Suspect]
     Indication: HIV INFECTION
     Route: 065
  4. DIDANOSINE [Concomitant]
  5. INDINIVIR SULFATE [Concomitant]
  6. NEVIRAPINE [Concomitant]

REACTIONS (8)
  - DEATH [None]
  - DYSARTHRIA [None]
  - JC VIRUS INFECTION [None]
  - LEUKOENCEPHALOPATHY [None]
  - MUSCULAR WEAKNESS [None]
  - NERVOUS SYSTEM DISORDER [None]
  - NEUROLOGICAL SYMPTOM [None]
  - PROGRESSIVE MULTIFOCAL LEUKOENCEPHALOPATHY [None]
